FAERS Safety Report 6574736-0 (Version None)
Quarter: 2010Q1

REPORT INFORMATION
  Report Type: 
  Country: None (occurrence: None)
  Receive Date: 20100201
  Receipt Date: 20100114
  Transmission Date: 20100710
  Serious: Yes (Hospitalization)
  Sender: FDA-Public Use
  Company Number: 14303135

PATIENT
  Age: 69 Year
  Sex: Male

DRUGS (5)
  1. NEUROLITE [Suspect]
     Indication: CEREBRAL THROMBOSIS
     Dosage: (740 MBQ, 1 D) , INTRAVENOUS, (740 MBQ, 1 D) , INTRAVENOUS (NOT OTHERWISE SPECIFIED)
     Route: 042
     Dates: start: 20080730
  2. NEUROLITE [Suspect]
     Indication: FAT EMBOLISM
     Dosage: (740 MBQ, 1 D) , INTRAVENOUS, (740 MBQ, 1 D) , INTRAVENOUS (NOT OTHERWISE SPECIFIED)
     Route: 042
     Dates: start: 20080730
  3. NEUROLITE [Suspect]
     Indication: CEREBRAL THROMBOSIS
     Dosage: (740 MBQ, 1 D) , INTRAVENOUS, (740 MBQ, 1 D) , INTRAVENOUS (NOT OTHERWISE SPECIFIED)
     Route: 042
     Dates: start: 20080730
  4. NEUROLITE [Suspect]
     Indication: FAT EMBOLISM
     Dosage: (740 MBQ, 1 D) , INTRAVENOUS, (740 MBQ, 1 D) , INTRAVENOUS (NOT OTHERWISE SPECIFIED)
     Route: 042
     Dates: start: 20080730
  5. SYMMETREL [Concomitant]

REACTIONS (3)
  - CHOLECYSTITIS [None]
  - CHOLELITHIASIS [None]
  - HEPATITIS FULMINANT [None]
